FAERS Safety Report 10078280 (Version 1)
Quarter: 2014Q2

REPORT INFORMATION
  Report Type: Report from Study
  Country: US (occurrence: US)
  Receive Date: 20140415
  Receipt Date: 20140415
  Transmission Date: 20141212
  Serious: Yes (Other)
  Sender: FDA-Public Use
  Company Number: US-BRISTOL-MYERS SQUIBB COMPANY-20544011

PATIENT
  Sex: Male
  Weight: 2.92 kg

DRUGS (4)
  1. REYATAZ [Suspect]
     Route: 064
     Dates: start: 20131107, end: 20131212
  2. NORVIR [Suspect]
     Route: 064
     Dates: start: 20131107, end: 20131212
  3. COMBIVIR [Suspect]
     Dosage: 1DF: 2TAB/CAP
     Route: 064
     Dates: start: 20131107
  4. ISENTRESS [Suspect]
     Route: 064
     Dates: start: 20131212

REACTIONS (5)
  - Supraventricular tachycardia [Unknown]
  - Congenital hydrocephalus [Unknown]
  - Hypotonia [Unknown]
  - Lid lag [Unknown]
  - Foetal exposure during pregnancy [Recovered/Resolved]
